FAERS Safety Report 10086508 (Version 3)
Quarter: 2017Q1

REPORT INFORMATION
  Report Type: Spontaneous
  Country: US (occurrence: US)
  Receive Date: 20140418
  Receipt Date: 20170227
  Transmission Date: 20170428
  Serious: No
  Sender: FDA-Public Use
  Company Number: US-PFIZER INC-2014109394

PATIENT
  Age: 76 Year
  Sex: Male
  Weight: 129.25 kg

DRUGS (33)
  1. FOLIC ACID. [Concomitant]
     Active Substance: FOLIC ACID
     Dosage: 800 UG, 2X/DAY
     Dates: start: 20071217
  2. NIACIN. [Concomitant]
     Active Substance: NIACIN
     Dosage: 1000 MG, 1X/DAY (1 PER NITE )
  3. LOSARTAN. [Concomitant]
     Active Substance: LOSARTAN
     Dosage: 25 MG, 1X/DAY
     Dates: start: 20160304
  4. LYRICA [Suspect]
     Active Substance: PREGABALIN
     Indication: NEUROPATHY PERIPHERAL
     Dosage: 75 MG, 2X/DAY
     Dates: start: 200903
  5. LYRICA [Suspect]
     Active Substance: PREGABALIN
     Dosage: 75 MG, 2X/DAY
     Dates: start: 20090403
  6. BUMETANIDE. [Concomitant]
     Active Substance: BUMETANIDE
     Indication: DIURETIC THERAPY
     Dosage: 25 MG, DAILY
  7. BUMETANIDE. [Concomitant]
     Active Substance: BUMETANIDE
     Dosage: UNK
     Dates: start: 20100510
  8. OMACOR [Concomitant]
     Active Substance: OMEGA-3-ACID ETHYL ESTERS
     Dosage: 2 G, 1X/DAY (AT NIGHT, 2 TABLETS PER DAY)
     Dates: start: 20080125
  9. KLOR-CON [Concomitant]
     Active Substance: POTASSIUM CHLORIDE
     Dosage: 10 MEQ, 1X/DAY
  10. TAMSULOSIN [Concomitant]
     Active Substance: TAMSULOSIN
     Indication: HYPERTONIC BLADDER
     Dosage: 0.4 MG, 1X/DAY (1 TABLET AT NITE/AT NITE ONLY)
  11. LYRICA [Suspect]
     Active Substance: PREGABALIN
     Indication: DIABETIC NEUROPATHY
     Dosage: 75 MG, 3X/DAY
  12. FISH OIL [Concomitant]
     Active Substance: FISH OIL
     Dosage: 2000 MG, DAILY
  13. BUMETANIDE. [Concomitant]
     Active Substance: BUMETANIDE
     Dosage: 10 MG, DAILY
     Dates: start: 20070829, end: 20080308
  14. JANUMET [Concomitant]
     Active Substance: METFORMIN HYDROCHLORIDE\SITAGLIPTIN PHOSPHATE
     Dosage: [SITAGLIPTIN 50MG] /[METFORMIN 500 MG] TWO TIMES A DAY
  15. BUMETANIDE. [Concomitant]
     Active Substance: BUMETANIDE
     Dosage: UNK
     Dates: start: 2009, end: 20100216
  16. VYTORIN [Concomitant]
     Active Substance: EZETIMIBE\SIMVASTATIN
     Indication: BLOOD CHOLESTEROL ABNORMAL
     Dosage: 10/80MG TABLET BY SPLITTING DAILY
  17. INVOKANA [Concomitant]
     Active Substance: CANAGLIFLOZIN
     Dosage: 300 MG, UNK
     Dates: start: 20150601
  18. NIASPAN [Concomitant]
     Active Substance: NIACIN
     Dosage: 2000 MG, DAILY
  19. SPIRONOLACTONE. [Concomitant]
     Active Substance: SPIRONOLACTONE
     Dosage: 25 MG, UNK
  20. FOLIC ACID. [Concomitant]
     Active Substance: FOLIC ACID
     Dosage: 400 UG, 1X/DAY
     Dates: end: 200411
  21. VITAMIN B COMPLEX [Concomitant]
     Active Substance: CYANOCOBALAMIN\DEXPANTHENOL\NIACINAMIDE\PYRIDOXINE HYDROCHLORIDE\RIBOFLAVIN 5^-PHOSPHATE SODIUM\THIAMINE HYDROCHLORIDE\VITAMIN B COMPLEX
     Dosage: 1 DF, DAILY
  22. VITAMIN C [Concomitant]
     Active Substance: ASCORBIC ACID
     Dosage: 500 MG, 2X/DAY
  23. VASCEPA [Concomitant]
     Active Substance: ICOSAPENT ETHYL
     Dosage: 16 MG, DAILY (2 MORNING 2 NITES)
     Dates: start: 20160910
  24. LYRICA [Suspect]
     Active Substance: PREGABALIN
     Dosage: 75 MG, 2X/DAY
  25. JANUMET [Concomitant]
     Active Substance: METFORMIN HYDROCHLORIDE\SITAGLIPTIN PHOSPHATE
     Dosage: UNK (METFORMIN HYDROCHLORIDE-1000MG, SITAGLIPTIN PHOSPHATE MONOHYDRATE-50MG)
     Dates: start: 20100322
  26. BABY ASPIRIN [Concomitant]
     Active Substance: ASPIRIN
     Dosage: 85 MG, ALTERNATE DAY (EVERY OTHER DAY)
     Dates: start: 20120521
  27. GLIMEPIRIDE. [Concomitant]
     Active Substance: GLIMEPIRIDE
     Dosage: 4 MG, UNK
     Dates: start: 20150101
  28. LYRICA [Suspect]
     Active Substance: PREGABALIN
     Dosage: UNK, 2X/DAY
     Dates: start: 20120109
  29. BUMETANIDE. [Concomitant]
     Active Substance: BUMETANIDE
     Dosage: 10 MG, DAILY
     Dates: start: 20160225
  30. VYTORIN [Concomitant]
     Active Substance: EZETIMIBE\SIMVASTATIN
     Dosage: UNK (EZETIMIBE-10MG,SIMVASTATIN-80MG)(1/2 OF VYTORIN SWITCHED FROM 10/80 MGS)
     Dates: start: 20110101
  31. COREG CR [Concomitant]
     Active Substance: CARVEDILOL PHOSPHATE
     Dosage: 20 MG, DAILY
     Dates: start: 20071115
  32. PANTOPRAZOLE [Concomitant]
     Active Substance: PANTOPRAZOLE SODIUM
     Dosage: 40 MG, UNK
  33. ANORO ELLIPTA [Concomitant]
     Active Substance: UMECLIDINIUM BROMIDE\VILANTEROL TRIFENATATE
     Dosage: UNK (UMECLIDINIUM BROMIDE-62.5 MCG,VILANTEROL TRIFENATATE-25MCG)
     Dates: start: 20160320

REACTIONS (2)
  - Blood glucose increased [Not Recovered/Not Resolved]
  - Drug ineffective [Unknown]

NARRATIVE: CASE EVENT DATE: 201404
